FAERS Safety Report 8397473-9 (Version None)
Quarter: 2012Q2

REPORT INFORMATION
  Report Type: 
  Country: None (occurrence: None)
  Receive Date: 20120529
  Receipt Date: 20120529
  Transmission Date: 20120825
  Serious: Yes (Other)
  Sender: FDA-Public Use
  Company Number: None

PATIENT
  Age: 39 Year
  Sex: Male
  Weight: 60.3284 kg

DRUGS (2)
  1. PROPECIA [Suspect]
     Indication: ANXIETY
     Dosage: 1MG EVERT DAT- PO  LATE 1990'S TO MID 2000'S
     Route: 048
  2. PROPECIA [Suspect]
     Indication: HEADACHE
     Dosage: 1MG EVERT DAT- PO  LATE 1990'S TO MID 2000'S
     Route: 048

REACTIONS (16)
  - FRUSTRATION [None]
  - COGNITIVE DISORDER [None]
  - MENTAL DISORDER [None]
  - LOSS OF EMPLOYMENT [None]
  - SEXUAL DYSFUNCTION [None]
  - MENTAL IMPAIRMENT [None]
  - ANXIETY [None]
  - MOOD ALTERED [None]
  - HEADACHE [None]
  - DISTURBANCE IN ATTENTION [None]
  - DISTURBANCE IN SOCIAL BEHAVIOUR [None]
  - SUICIDAL IDEATION [None]
  - PARTNER STRESS [None]
  - INCOHERENT [None]
  - DEPRESSION [None]
  - THINKING ABNORMAL [None]
